FAERS Safety Report 23622372 (Version 1)
Quarter: 2024Q1

REPORT INFORMATION
  Report Type: Spontaneous
  Country: CN (occurrence: CN)
  Receive Date: 20240312
  Receipt Date: 20240312
  Transmission Date: 20240410
  Serious: Yes (Other)
  Sender: FDA-Public Use
  Company Number: CN-PFIZER INC-PV202400032931

PATIENT

DRUGS (1)
  1. MEROPENEM [Suspect]
     Active Substance: MEROPENEM
     Dosage: UNK

REACTIONS (7)
  - Anaphylactic shock [Unknown]
  - Cytopenia [Unknown]
  - Nephropathy toxic [Unknown]
  - Hypoaesthesia [Unknown]
  - Movement disorder [Unknown]
  - Thrombocytosis [Unknown]
  - Rash [Unknown]
